FAERS Safety Report 5264492-0 (Version None)
Quarter: 2007Q1

REPORT INFORMATION
  Report Type: 
  Country: None (occurrence: None)
  Receive Date: 20070309
  Receipt Date: 20070221
  Transmission Date: 20070707
  Serious: Yes (Other)
  Sender: FDA-Public Use
  Company Number: 2006BL006576

PATIENT
  Age: 19 Year
  Sex: Female
  Weight: 49.8957 kg

DRUGS (1)
  1. ANTIPYRINE AND BENZOCAINE OTIC SOLUTION USP [Suspect]

REACTIONS (8)
  - ACCIDENTAL EXPOSURE [None]
  - BURNS SECOND DEGREE [None]
  - CHEMICAL BURN OF SKIN [None]
  - INJURY [None]
  - PAIN [None]
  - PRURITUS [None]
  - SCAR [None]
  - WRONG TECHNIQUE IN DRUG USAGE PROCESS [None]
